FAERS Safety Report 7428085-9 (Version None)
Quarter: 2011Q2

REPORT INFORMATION
  Report Type: 
  Country: None (occurrence: None)
  Receive Date: 20110413
  Receipt Date: 20110328
  Transmission Date: 20111010
  Serious: Yes (Other)
  Sender: FDA-Public Use
  Company Number: DSA_45340_2011

PATIENT
  Age: 38 Year
  Sex: Male

DRUGS (4)
  1. OLANZAPINE [Concomitant]
  2. GLYBURIDE [Concomitant]
  3. BUPROPION (BUPROPION - BUPROPION HYDROCHLORIDE) [Suspect]
     Indication: PRODUCT USED FOR UNKNOWN INDICATION
     Dosage: 2X *CRUSHED 15 BUPROPION SR (SUSTAINED RELEASE) 100 MG TABLETS AND INSUFFLATED THEM* NASAL
     Route: 045
  4. METFORMIN [Concomitant]

REACTIONS (6)
  - TONGUE BITING [None]
  - WRONG TECHNIQUE IN DRUG USAGE PROCESS [None]
  - EUPHORIC MOOD [None]
  - DRUG ABUSE [None]
  - GRAND MAL CONVULSION [None]
  - BLOOD GLUCOSE INCREASED [None]
